FAERS Safety Report 8579807-5 (Version None)
Quarter: 2012Q3

REPORT INFORMATION
  Report Type: 
  Country: None (occurrence: None)
  Receive Date: 20120808
  Receipt Date: 20120803
  Transmission Date: 20120928
  Serious: Yes (Hospitalization)
  Sender: FDA-Public Use
  Company Number: US-ASTRAZENECA-2012SE55077

PATIENT
  Age: 54 Year
  Sex: Female
  Weight: 117.9 kg

DRUGS (9)
  1. GENERIC REQUIP [Concomitant]
     Indication: RESTLESS LEGS SYNDROME
     Route: 048
  2. EFFEXOR XR [Concomitant]
     Indication: DEPRESSION
     Route: 048
     Dates: start: 19970101
  3. NEXIUM [Suspect]
     Route: 048
     Dates: start: 20080101
  4. OMEPRAZOLE [Suspect]
     Indication: OESOPHAGEAL PERFORATION
     Route: 048
     Dates: start: 20080101, end: 20080101
  5. ATENOLOL [Concomitant]
     Indication: HYPERTENSION
     Route: 048
  6. NEXIUM [Suspect]
     Indication: OESOPHAGEAL PERFORATION
     Route: 048
     Dates: start: 20020101
  7. METFORMIN HYDROCHLORIDE [Concomitant]
     Indication: DIABETES MELLITUS
     Route: 048
  8. SIMVASTATIN [Concomitant]
     Indication: BLOOD CHOLESTEROL INCREASED
     Route: 048
  9. ASPIRIN [Concomitant]
     Indication: HYPERTENSION
     Route: 048
     Dates: start: 20110901

REACTIONS (6)
  - VOMITING [None]
  - OFF LABEL USE [None]
  - BLOOD MAGNESIUM DECREASED [None]
  - ATRIAL FIBRILLATION [None]
  - GASTROOESOPHAGEAL REFLUX DISEASE [None]
  - RESTLESS LEGS SYNDROME [None]
